FAERS Safety Report 20627498 (Version 1)
Quarter: 2022Q1

REPORT INFORMATION
  Report Type: Spontaneous
  Country: US (occurrence: None)
  Receive Date: 20220322
  Receipt Date: 20220322
  Transmission Date: 20220423
  Serious: Yes (Life-Threatening, Hospitalization)
  Sender: FDA-Public Use
  Company Number: None

PATIENT
  Age: 30 Year
  Sex: Male
  Weight: 94.5 kg

DRUGS (2)
  1. LUMASON [Suspect]
     Active Substance: SULFUR HEXAFLUORIDE
     Indication: Echocardiogram
     Dates: start: 20220320, end: 20220320
  2. COREG [Concomitant]
     Active Substance: CARVEDILOL

REACTIONS (11)
  - Tremor [None]
  - Feeling hot [None]
  - Pain in extremity [None]
  - Pain in extremity [None]
  - Erythema [None]
  - Burning sensation [None]
  - Oral disorder [None]
  - Dyspnoea [None]
  - Throat tightness [None]
  - Heart rate increased [None]
  - Paraesthesia [None]

NARRATIVE: CASE EVENT DATE: 20220320
